FAERS Safety Report 7877001-4 (Version None)
Quarter: 2011Q4

REPORT INFORMATION
  Report Type: 
  Country: None (occurrence: None)
  Receive Date: 20111031
  Receipt Date: 20110728
  Transmission Date: 20120403
  Serious: No
  Sender: FDA-Public Use
  Company Number: US-ABBOTT-11P-163-0842265-00

PATIENT
  Sex: Male

DRUGS (13)
  1. PRILOSEC [Concomitant]
     Indication: GASTROOESOPHAGEAL REFLUX DISEASE
  2. ADVAIR DISKUS 100/50 [Concomitant]
     Indication: DYSPNOEA
  3. NOVOLOG [Concomitant]
     Indication: BLOOD INSULIN
     Dates: start: 20080101
  4. CELEXA [Concomitant]
     Indication: DEPRESSION
  5. LANTUS [Concomitant]
     Indication: PANCREATICODUODENECTOMY
     Dates: start: 20080101
  6. CALCIUM [Concomitant]
     Indication: MINERAL SUPPLEMENTATION
  7. METHYLPHENIDATE [Concomitant]
     Indication: ATTENTION DEFICIT/HYPERACTIVITY DISORDER
  8. ALBUTEROL [Concomitant]
     Indication: DYSPNOEA
  9. PREDNISONE [Concomitant]
     Indication: PRODUCT USED FOR UNKNOWN INDICATION
  10. CREON [Suspect]
     Indication: PANCREATICODUODENECTOMY
     Dates: start: 20080101, end: 20110727
  11. CREON [Suspect]
     Dates: start: 20110728
  12. QUESTRAN [Concomitant]
     Indication: PANCREATICODUODENECTOMY
     Dates: start: 20080101
  13. ASCORBIC ACID [Concomitant]
     Indication: VITAMIN SUPPLEMENTATION

REACTIONS (4)
  - WEIGHT DECREASED [None]
  - FREQUENT BOWEL MOVEMENTS [None]
  - MALNUTRITION [None]
  - ASTHENIA [None]
